FAERS Safety Report 9852436 (Version 3)
Quarter: 2014Q1

REPORT INFORMATION
  Report Type: Report from Study
  Country: CA (occurrence: CA)
  Receive Date: 20140129
  Receipt Date: 20140211
  Transmission Date: 20141002
  Serious: Yes (Other)
  Sender: FDA-Public Use
  Company Number: CA-BRISTOL-MYERS SQUIBB COMPANY-19735232

PATIENT
  Age: 54 Year
  Sex: Female

DRUGS (11)
  1. ORENCIA [Suspect]
     Indication: RHEUMATOID ARTHRITIS
     Dosage: 1DF=750 UNITS?BATCH NO. 2H62038 EXPIRTION: APR 2015
     Dates: start: 20111128
  2. NAPROSYN [Concomitant]
  3. ATASOL [Concomitant]
  4. NEXIUM [Concomitant]
  5. DOMPERIDONE [Concomitant]
  6. CALCIUM [Concomitant]
  7. CITALOPRAM [Concomitant]
  8. PLAQUENIL [Concomitant]
  9. METHOTREXATE [Concomitant]
  10. LEUCOVORIN [Concomitant]
  11. NAPROXEN [Concomitant]

REACTIONS (7)
  - Cataract [Unknown]
  - Pneumonia [Unknown]
  - Cough [Not Recovered/Not Resolved]
  - Headache [Unknown]
  - Diarrhoea [Unknown]
  - Swelling face [Unknown]
  - Pain [Not Recovered/Not Resolved]
